FAERS Safety Report 18955717 (Version 1)
Quarter: 2021Q1

REPORT INFORMATION
  Report Type: Spontaneous
  Country: GB (occurrence: GB)
  Receive Date: 20210301
  Receipt Date: 20210301
  Transmission Date: 20210420
  Serious: Yes (Other)
  Sender: FDA-Public Use
  Company Number: GB-PFIZER INC-2021177304

PATIENT
  Age: 37 Year
  Sex: Female
  Weight: 104 kg

DRUGS (11)
  1. FOSTAIR [Concomitant]
     Active Substance: BECLOMETHASONE\FORMOTEROL
     Dosage: TWO PUFFS TWICE DAILY
     Dates: start: 20190502
  2. CLINDAMYCIN. [Suspect]
     Active Substance: CLINDAMYCIN
     Dosage: 300 MG, 4X/DAY
     Dates: start: 20210215
  3. CLOPIDOGREL [Concomitant]
     Active Substance: CLOPIDOGREL BISULFATE
     Dosage: ONE TO BE TAKEN ONCE A DAY
     Dates: start: 20191203
  4. FUSIDIC ACID [Concomitant]
     Active Substance: FUSIDIC ACID
     Dosage: APPLY 3?4 TIMES A DAY
     Dates: start: 20210210, end: 20210211
  5. HYDROXYCHLOROQUINE SULFATE. [Concomitant]
     Active Substance: HYDROXYCHLOROQUINE SULFATE
     Dosage: 2 TABLETS DAILY ?PLEASE ENSURE ANNUAL OPTICIANS...
     Dates: start: 20200903
  6. OMEPRAZOLE. [Concomitant]
     Active Substance: OMEPRAZOLE
     Dosage: TAKE ONE DAILY IN THE MORNING
     Dates: start: 20201111
  7. NAPROXEN. [Concomitant]
     Active Substance: NAPROXEN
     Dosage: TAKE ONE TABLET TWICE DAILY WHEN REQUIRED FOR P...
     Dates: start: 20190805
  8. SALBUTAMOL [Concomitant]
     Active Substance: ALBUTEROL
     Dosage: INHALE 2 DOSES AS NEEDED
     Dates: start: 20201209
  9. ACICLOVIR [Concomitant]
     Active Substance: ACYCLOVIR
     Dosage: TAKE ONE TWICE DAILY
     Dates: start: 20190213
  10. DOXYCYCLINE. [Concomitant]
     Active Substance: DOXYCYCLINE
     Dosage: TWO NOW THEN ONE DAILY
     Dates: start: 20210209
  11. RIZATRIPTAN. [Concomitant]
     Active Substance: RIZATRIPTAN
     Dosage: TAKE ONE AS DIRECTED
     Dates: start: 20181008

REACTIONS (1)
  - Urticaria [Not Recovered/Not Resolved]

NARRATIVE: CASE EVENT DATE: 20210215
